FAERS Safety Report 7834168-1 (Version None)
Quarter: 2011Q4

REPORT INFORMATION
  Report Type: 
  Country: None (occurrence: None)
  Receive Date: 20111024
  Receipt Date: 20111013
  Transmission Date: 20120403
  Serious: Yes (Other)
  Sender: FDA-Public Use
  Company Number: PHEH2009US00900

PATIENT
  Sex: Male
  Weight: 91.791 kg

DRUGS (24)
  1. OXYCODONE HCL [Concomitant]
     Indication: PAIN
     Dosage: 40 MG, PRN
     Dates: start: 20070101
  2. DECADRON [Concomitant]
  3. DEXAMETHASONE [Concomitant]
     Indication: MULTIPLE MYELOMA
     Dosage: 4 MG, 10 TABS Q SAT
     Dates: start: 20070607
  4. ASPIRIN [Concomitant]
     Indication: ANTICOAGULANT THERAPY
     Dosage: 325 MG,
     Dates: start: 20001101
  5. COMPAZINE [Concomitant]
  6. ATENOLOL [Concomitant]
     Dosage: 25 MG,
     Dates: start: 20000401
  7. OMEPRAZOLE [Concomitant]
  8. OXYCODONE HCL [Concomitant]
     Dosage: 5 MG 1-2 CAP Q 2-3 HR PRN
     Dates: start: 20070101
  9. PLAVIX [Concomitant]
  10. MORPHINE [Concomitant]
     Dates: start: 20070101, end: 20070101
  11. WARFARIN SODIUM [Concomitant]
     Indication: ANTICOAGULANT THERAPY
     Dosage: 2 MG, QHS
     Dates: start: 20070608
  12. XANAX [Concomitant]
  13. PERCOCET [Concomitant]
  14. PRAVACHOL [Concomitant]
     Dates: start: 20000101, end: 20060101
  15. TRIMETHOPRIM [Concomitant]
     Indication: ANTIBIOTIC PROPHYLAXIS
     Dosage: 1 DF, BID
     Dates: start: 20070622
  16. VITAMIN B6 [Concomitant]
     Indication: NEUROPATHY PERIPHERAL
     Dates: start: 20060501
  17. CHEMOTHERAPEUTICS NOS [Concomitant]
     Dates: start: 20060401
  18. ZOMETA [Suspect]
     Indication: MULTIPLE MYELOMA
     Dosage: 4 MG, QMO
     Route: 042
     Dates: start: 20030301, end: 20061001
  19. THALIDOMIDE [Concomitant]
     Dosage: 200 MG, QD
     Dates: start: 20030401, end: 20060601
  20. LIPITOR [Concomitant]
     Dates: start: 20060101
  21. VITAMINS NOS [Concomitant]
     Dates: start: 20030101
  22. REVLIMID [Concomitant]
     Indication: MULTIPLE MYELOMA
     Dosage: 25 MG, QW3
     Dates: start: 20060701
  23. CLINDAMYCIN [Concomitant]
     Dosage: 300 MG, TID
     Dates: start: 20061201
  24. COUMADIN [Concomitant]

REACTIONS (27)
  - CATARACT [None]
  - BLOODY DISCHARGE [None]
  - CONSTIPATION [None]
  - INJURY [None]
  - OSTEONECROSIS OF JAW [None]
  - ANHEDONIA [None]
  - BONE PAIN [None]
  - ARTERIAL DISORDER [None]
  - PAIN [None]
  - SWELLING [None]
  - INFECTION [None]
  - PLASMACYTOSIS [None]
  - RECTAL HAEMORRHAGE [None]
  - NEUROPATHY PERIPHERAL [None]
  - OPEN WOUND [None]
  - HAEMORRHOIDS [None]
  - CHEST PAIN [None]
  - BONE DISORDER [None]
  - HYPERCHOLESTEROLAEMIA [None]
  - HYPOAESTHESIA [None]
  - SWELLING FACE [None]
  - OSTEOLYSIS [None]
  - TOOTH LOSS [None]
  - ANXIETY [None]
  - PARAESTHESIA [None]
  - ANAEMIA [None]
  - BLOOD PRESSURE INCREASED [None]
